FAERS Safety Report 18940244 (Version 1)
Quarter: 2021Q1

REPORT INFORMATION
  Report Type: Spontaneous
  Country: GB (occurrence: GB)
  Receive Date: 20210225
  Receipt Date: 20210225
  Transmission Date: 20210420
  Serious: Yes (Hospitalization)
  Sender: FDA-Public Use
  Company Number: GB-VERTEX PHARMACEUTICALS-2021-002886

PATIENT
  Sex: Female

DRUGS (7)
  1. KAFTRIO [Suspect]
     Active Substance: ELEXACAFTOR\IVACAFTOR\TEZACAFTOR
     Indication: CYSTIC FIBROSIS
     Dosage: (75 MG IVACAFTOR /50 MG TEZACAFTOR/100 MG ELEXACAFTOR) TWICE A DAY
     Route: 048
     Dates: start: 202010
  2. KALYDECO [Suspect]
     Active Substance: IVACAFTOR
     Indication: CYSTIC FIBROSIS
     Dosage: (150 MG IVACAFTOR) TWICE A DAY
     Route: 048
     Dates: start: 202010
  3. COLOMYCIN [COLISTIN SULFATE] [Concomitant]
     Active Substance: COLISTIN SULFATE
  4. AZTREONAM. [Concomitant]
     Active Substance: AZTREONAM
  5. PULMOZYME [Concomitant]
     Active Substance: DORNASE ALFA
  6. PROMIXIN [THIAMPHENICOL] [Concomitant]
     Active Substance: THIAMPHENICOL
  7. COLOBREATHE [Concomitant]
     Active Substance: COLISTIMETHATE SODIUM

REACTIONS (1)
  - Muscle strain [Unknown]

NARRATIVE: CASE EVENT DATE: 2021
